FAERS Safety Report 8910663 (Version 1)
Quarter: 2012Q4

REPORT INFORMATION
  Report Type: Spontaneous
  Country: CA (occurrence: None)
  Receive Date: 20121108
  Receipt Date: 20121108
  Transmission Date: 20130627
  Serious: Yes (Other)
  Sender: FDA-Public Use
  Company Number: 2012000241

PATIENT
  Sex: Female

DRUGS (5)
  1. ACEON (PERINDOPRIL ERBUMINE) TABLET [Suspect]
     Indication: HYPERTENSION
     Dates: start: 2010, end: 2010
  2. BETASERON [Suspect]
     Indication: MULTIPLE SCLEROSIS
     Dosage: every 2 days
     Route: 058
  3. DIOVAN (VALSARTAN) [Suspect]
     Indication: HYPERTENSION
     Dates: start: 201004
  4. NORVASC (AMLODIPINE BESILATE) [Suspect]
     Indication: HYPERTENSION
     Dates: start: 201004
  5. RASILEZ [Concomitant]
     Indication: PRODUCT USED FOR UNKNOWN INDICATION
     Dates: start: 2010

REACTIONS (2)
  - Influenza like illness [None]
  - Angioedema [None]
